FAERS Safety Report 16835304 (Version 1)
Quarter: 2019Q3

REPORT INFORMATION
  Report Type: Spontaneous
  Country: BR (occurrence: BR)
  Receive Date: 20190920
  Receipt Date: 20190920
  Transmission Date: 20191005
  Serious: Yes (Death, Hospitalization)
  Sender: FDA-Public Use
  Company Number: BR-CELGENEUS-BRA-20190905510

PATIENT
  Age: 42 Year
  Sex: Female

DRUGS (1)
  1. VIDAZA [Suspect]
     Active Substance: AZACITIDINE
     Indication: CHRONIC MYELOMONOCYTIC LEUKAEMIA
     Route: 065
     Dates: start: 20171030, end: 201908

REACTIONS (7)
  - Splenic lesion [Unknown]
  - Splenomegaly [Unknown]
  - Respiratory tract haemorrhage [Unknown]
  - Abdominal pain [Unknown]
  - Drug ineffective [Unknown]
  - Death [Fatal]
  - Dyspnoea [Unknown]

NARRATIVE: CASE EVENT DATE: 201710
